FAERS Safety Report 8281921 (Version 3)
Quarter: 2013Q1

REPORT INFORMATION
  Report Type: Spontaneous
  Country: US (occurrence: US)
  Receive Date: 20111209
  Receipt Date: 20130307
  Transmission Date: 20140127
  Serious: Yes (Hospitalization)
  Sender: FDA-Public Use
  Company Number: US-BAYER-2011-115479

PATIENT
  Age: 28 Year
  Sex: Female
  Weight: 57.6 kg

DRUGS (8)
  1. YASMIN [Suspect]
     Indication: CONTRACEPTION
     Dosage: UNK
     Dates: start: 20050716, end: 20050723
  2. YASMIN [Suspect]
     Indication: PREMENSTRUAL SYNDROME
  3. YASMIN [Suspect]
     Indication: MENORRHAGIA
  4. AMBIEN [Concomitant]
     Indication: SLEEP DISORDER THERAPY
     Dosage: 5 MG, UNK
     Route: 048
     Dates: start: 20050721
  5. ZYRTEC [Concomitant]
     Dosage: 10 MG, UNK
     Route: 048
     Dates: start: 20050523
  6. FLONASE [Concomitant]
     Dosage: UNK
     Route: 045
     Dates: start: 20050510
  7. TYLENOL #3 [Concomitant]
     Dosage: UNK
     Route: 048
     Dates: start: 20050510
  8. NUVARING [Concomitant]
     Dosage: UNK
     Dates: start: 200506

REACTIONS (5)
  - Cerebral infarction [None]
  - Hemiplegia [None]
  - Aphasia [None]
  - Pain [None]
  - Mental disorder [None]
